FAERS Safety Report 7131463-9 (Version None)
Quarter: 2010Q4

REPORT INFORMATION
  Report Type: 
  Country: None (occurrence: None)
  Receive Date: 20101201
  Receipt Date: 20101124
  Transmission Date: 20110411
  Serious: Yes (Life-Threatening)
  Sender: FDA-Public Use
  Company Number: JP-PFIZER INC-2010160356

PATIENT
  Age: 62 Year
  Sex: Female

DRUGS (6)
  1. ZOSYN [Suspect]
     Indication: DIFFUSE PANBRONCHIOLITIS
     Dosage: 4.5 G, 2X/DAY
     Dates: start: 20100831, end: 20100912
  2. ZOSYN [Suspect]
     Dosage: 4.5 G, 4X/DAY
     Dates: start: 20100913, end: 20100913
  3. LOXONIN [Suspect]
     Indication: PYREXIA
     Dosage: UNK
     Route: 048
     Dates: start: 20070101, end: 20100913
  4. CLARITHROMYCIN [Concomitant]
     Indication: DIFFUSE PANBRONCHIOLITIS
     Dosage: 200 MG, 1X/DAY
     Route: 048
     Dates: start: 20050101, end: 20100913
  5. MUCODYNE [Concomitant]
     Indication: DIFFUSE PANBRONCHIOLITIS
     Dosage: 1500 MG, 1X/DAY
     Route: 048
     Dates: start: 20050101, end: 20100913
  6. ADVAIR [Concomitant]
     Indication: ASTHMA
     Dosage: 4 DF, 1X/DAY
     Dates: start: 20080801, end: 20100913

REACTIONS (3)
  - AGRANULOCYTOSIS [None]
  - DISSEMINATED INTRAVASCULAR COAGULATION [None]
  - LIVER DISORDER [None]
